FAERS Safety Report 7324347-4 (Version None)
Quarter: 2011Q1

REPORT INFORMATION
  Report Type: 
  Country: None (occurrence: None)
  Receive Date: 20110301
  Receipt Date: 20110223
  Transmission Date: 20110831
  Serious: Yes (Life-Threatening, Hospitalization, Disabling, Other)
  Sender: FDA-Public Use
  Company Number: US-ABBOTT-11P-163-0707517-00

PATIENT
  Sex: Female

DRUGS (1)
  1. HUMIRA [Suspect]
     Indication: ANKYLOSING SPONDYLITIS

REACTIONS (8)
  - COMA [None]
  - IMPAIRED WORK ABILITY [None]
  - PHYSICAL DISABILITY [None]
  - EMOTIONAL DISTRESS [None]
  - CONVULSION [None]
  - PAIN [None]
  - DEMYELINATION [None]
  - MULTIPLE INJURIES [None]
